FAERS Safety Report 5306178-X (Version None)
Quarter: 2007Q2

REPORT INFORMATION
  Report Type: 
  Country: None (occurrence: None)
  Receive Date: 20070424
  Receipt Date: 20070413
  Transmission Date: 20071010
  Serious: Yes (Death, Hospitalization)
  Sender: FDA-Public Use
  Company Number: US-SANOFI-SYNTHELABO-A03200702637

PATIENT
  Sex: Female

DRUGS (3)
  1. LASIX [Concomitant]
     Route: 048
  2. PLAVIX [Suspect]
     Indication: THROMBOSIS
     Dosage: UNK
     Route: 048
     Dates: start: 19960101
  3. LOVENOX [Suspect]
     Indication: THROMBOSIS
     Route: 058
     Dates: start: 19960101

REACTIONS (3)
  - AORTIC ANEURYSM RUPTURE [None]
  - CHEST PAIN [None]
  - COMA [None]
